FAERS Safety Report 10750260 (Version 2)
Quarter: 2015Q1

REPORT INFORMATION
  Report Type: Spontaneous
  Country: JP (occurrence: JP)
  Receive Date: 20150129
  Receipt Date: 20150224
  Transmission Date: 20150721
  Serious: Yes (Other)
  Sender: FDA-Public Use
  Company Number: PHHY2015JP006108

PATIENT
  Sex: Female
  Weight: 65 kg

DRUGS (4)
  1. APRESOLINE HYDROCHLORIDE [Suspect]
     Active Substance: HYDRALAZINE HYDROCHLORIDE
     Indication: HYPERTENSIVE NEPHROPATHY
     Dosage: 30 MG, QD
     Route: 048
     Dates: start: 20090622, end: 20090623
  2. ROPIVACAINE HYDROCHLORIDE. [Suspect]
     Active Substance: ROPIVACAINE HYDROCHLORIDE
     Indication: PAIN
     Route: 008
  3. OXYTOCIN. [Suspect]
     Active Substance: OXYTOCIN
     Indication: HYPERTENSION
     Dosage: 50 ML, PER HOUR
     Route: 042
  4. OXYTOCIN. [Suspect]
     Active Substance: OXYTOCIN
     Dosage: 30 ML, PER HOUR
     Route: 042

REACTIONS (4)
  - Blood pressure increased [Unknown]
  - Chest discomfort [Unknown]
  - Normal newborn [Unknown]
  - Maternal exposure during pregnancy [Unknown]
